FAERS Safety Report 6752350-1 (Version None)
Quarter: 2010Q2

REPORT INFORMATION
  Report Type: 
  Country: None (occurrence: None)
  Receive Date: 20100528
  Receipt Date: 20100518
  Transmission Date: 20101027
  Serious: Yes (Hospitalization, Disabling)
  Sender: FDA-Public Use
  Company Number: 7005240

PATIENT
  Sex: Female

DRUGS (1)
  1. SEROSTIM [Suspect]
     Indication: DRUG USE FOR UNKNOWN INDICATION
     Dosage: 4 MG

REACTIONS (3)
  - BLINDNESS [None]
  - CYTOMEGALOVIRUS INFECTION [None]
  - HERPES ZOSTER [None]
